FAERS Safety Report 16172474 (Version 2)
Quarter: 2019Q3

REPORT INFORMATION
  Report Type: Spontaneous
  Country: US (occurrence: US)
  Receive Date: 20190409
  Receipt Date: 20190902
  Transmission Date: 20191004
  Serious: Yes (Life-Threatening, Other)
  Sender: FDA-Public Use
  Company Number: US-SUN PHARMACEUTICAL INDUSTRIES LTD-2019R1-204303

PATIENT
  Age: 50 Year
  Sex: Female
  Weight: 30 kg

DRUGS (2)
  1. METFORMIN [Suspect]
     Active Substance: METFORMIN HYDROCHLORIDE
     Indication: MOOD ALTERED
  2. METFORMIN [Suspect]
     Active Substance: METFORMIN HYDROCHLORIDE
     Indication: WEIGHT DECREASED
     Dosage: TWO 850 MG TABLETS SEVERAL TIMES DAILY
     Route: 065

REACTIONS (5)
  - Multiple organ dysfunction syndrome [Unknown]
  - Renal tubular necrosis [Not Recovered/Not Resolved]
  - Drug abuse [Unknown]
  - Renal failure [Unknown]
  - Lactic acidosis [Not Recovered/Not Resolved]
